FAERS Safety Report 5078241-2 (Version None)
Quarter: 2006Q3

REPORT INFORMATION
  Report Type: 
  Country: None (occurrence: None)
  Receive Date: 20060811
  Receipt Date: 20060713
  Transmission Date: 20061208
  Serious: Yes (Other)
  Sender: FDA-Public Use
  Company Number: US-ROCHE-455571

PATIENT
  Age: 52 Year
  Sex: Male

DRUGS (5)
  1. PEGASYS [Suspect]
     Dosage: ROUTE REPORTED AS INJECTION.
     Route: 050
     Dates: start: 20060124
  2. COPEGUS [Suspect]
     Route: 048
     Dates: start: 20060124
  3. ATENOLOL [Concomitant]
     Indication: HYPERTENSION
     Route: 048
  4. ALTACE [Concomitant]
     Indication: HYPERTENSION
     Route: 048
  5. ABILIFY [Concomitant]
     Indication: BIPOLAR DISORDER
     Route: 048

REACTIONS (5)
  - FATIGUE [None]
  - FURUNCLE [None]
  - HEPATIC CYST [None]
  - RASH [None]
  - WHITE BLOOD CELL COUNT DECREASED [None]
